FAERS Safety Report 4496904-4 (Version None)
Quarter: 2004Q4

REPORT INFORMATION
  Report Type: 
  Country: None (occurrence: None)
  Receive Date: 20040928
  Receipt Date: 20040830
  Transmission Date: 20050328
  Serious: No
  Sender: FDA-Public Use
  Company Number: 04P-163-0257797-00

PATIENT
  Age: 42 Year
  Sex: Female

DRUGS (6)
  1. HUMIRA [Suspect]
     Indication: RHEUMATOID ARTHRITIS
     Dosage: 40 MG , 1 IN 2 WK, SUBCUTANEOUS
     Route: 058
     Dates: start: 20031223
  2. AZATHIOPRINE [Concomitant]
  3. PREDNISONE [Concomitant]
  4. RISEDRONATE SODIUM [Concomitant]
  5. ACETYLSALICYLIC ACID [Concomitant]
  6. CALCIUM [Concomitant]

REACTIONS (2)
  - ALANINE AMINOTRANSFERASE INCREASED [None]
  - ASPARTATE AMINOTRANSFERASE INCREASED [None]
